FAERS Safety Report 5515898-3 (Version None)
Quarter: 2007Q4

REPORT INFORMATION
  Report Type: 
  Country: None (occurrence: None)
  Receive Date: 20071109
  Receipt Date: 20071101
  Transmission Date: 20080405
  Serious: Yes (Life-Threatening)
  Sender: FDA-Public Use
  Company Number: 2007AL004679

PATIENT
  Age: 76 Year
  Sex: Male

DRUGS (7)
  1. MIRTAZAPINE [Suspect]
     Indication: DEPRESSION
     Dosage: 15 MG; QD; PO
     Route: 048
     Dates: start: 20070926, end: 20071001
  2. AMLODIPINE [Concomitant]
  3. FERROUS SULFATE TAB [Concomitant]
  4. PARACETAMOL [Concomitant]
  5. PHENOXYMETHYL PENICILLIN [Concomitant]
  6. RAMIPRIL [Concomitant]
  7. TIMOPTIC [Concomitant]

REACTIONS (6)
  - CONFUSIONAL STATE [None]
  - HALLUCINATION [None]
  - IMMOBILE [None]
  - MYOCLONUS [None]
  - NIGHTMARE [None]
  - SOMNOLENCE [None]
